FAERS Safety Report 5423105-5 (Version None)
Quarter: 2007Q3

REPORT INFORMATION
  Report Type: 
  Country: None (occurrence: None)
  Receive Date: 20070821
  Receipt Date: 20070806
  Transmission Date: 20080115
  Serious: Yes (Other)
  Sender: FDA-Public Use
  Company Number: 2007RR-09151

PATIENT
  Age: 80 Year
  Sex: Female

DRUGS (4)
  1. CLARITHROMYCIN [Suspect]
  2. ISONIAZID [Concomitant]
  3. RIFAMPICIN [Concomitant]
  4. ETHAMBUTOL HYDROCHLORIDE [Concomitant]

REACTIONS (1)
  - EOSINOPHILIC PNEUMONIA [None]
